FAERS Safety Report 9690579 (Version 1)
Quarter: 2013Q4

REPORT INFORMATION
  Report Type: Report from Study
  Country: BR (occurrence: BR)
  Receive Date: 20131115
  Receipt Date: 20131115
  Transmission Date: 20140711
  Serious: Yes (Other)
  Sender: FDA-Public Use
  Company Number: PHHY2013BR130200

PATIENT
  Sex: Male
  Weight: 92 kg

DRUGS (2)
  1. RITALIN LA [Suspect]
     Indication: PSYCHOMOTOR HYPERACTIVITY
     Dosage: 1 DF, QD (IN THE MORNING)
  2. DONAREN [Concomitant]
     Dosage: UNK UKN, UNK

REACTIONS (2)
  - Renal colic [Unknown]
  - Pain [Unknown]
